FAERS Safety Report 10080653 (Version 1)
Quarter: 2014Q2

REPORT INFORMATION
  Report Type: Spontaneous
  Country: PL (occurrence: PL)
  Receive Date: 20140416
  Receipt Date: 20140416
  Transmission Date: 20141212
  Serious: Yes (Hospitalization)
  Sender: FDA-Public Use
  Company Number: PL-UCBSA-117837

PATIENT
  Age: 8 Year
  Sex: Female

DRUGS (2)
  1. LEVOCETIRIZINE [Suspect]
     Indication: ANTIALLERGIC THERAPY
     Dosage: 2.5 MG DAILY
  2. FLUTICASONE [Concomitant]

REACTIONS (1)
  - Headache [Recovered/Resolved]
